FAERS Safety Report 5429663-9 (Version None)
Quarter: 2007Q3

REPORT INFORMATION
  Report Type: 
  Country: None (occurrence: None)
  Receive Date: 20070731
  Receipt Date: 20070410
  Transmission Date: 20080115
  Serious: No
  Sender: FDA-Public Use
  Company Number: US200704002349

PATIENT
  Sex: Female

DRUGS (3)
  1. BYETTA [Suspect]
     Indication: TYPE 2 DIABETES MELLITUS
     Dosage: SUBCUTANEOUS
     Route: 058
     Dates: start: 20070301
  2. GLYBURIDE [Concomitant]
  3. METFORMIN HCL [Concomitant]

REACTIONS (1)
  - BLOOD GLUCOSE ABNORMAL [None]
